FAERS Safety Report 5432259-6 (Version None)
Quarter: 2007Q3

REPORT INFORMATION
  Report Type: 
  Country: None (occurrence: None)
  Receive Date: 20070830
  Receipt Date: 20070821
  Transmission Date: 20080115
  Serious: Yes (Other)
  Sender: FDA-Public Use
  Company Number: US-PFIZER INC-2007069915

PATIENT
  Age: 58 Year
  Sex: Female

DRUGS (3)
  1. PREDNISONE [Suspect]
     Indication: PEMPHIGUS
     Dosage: TEXT:20 - 30  MILLIGRAMS
  2. PREDNISONE [Suspect]
     Dosage: DAILY DOSE:10MG
  3. MYCOPHENOLATE MOFETIL [Suspect]
     Indication: PEMPHIGUS

REACTIONS (5)
  - ANAEMIA [None]
  - CATARACT [None]
  - OBESITY [None]
  - OSTEONECROSIS [None]
  - TYPE 2 DIABETES MELLITUS [None]
